FAERS Safety Report 10265682 (Version 1)
Quarter: 2014Q2

REPORT INFORMATION
  Report Type: Spontaneous
  Country: US (occurrence: US)
  Receive Date: 20140627
  Receipt Date: 20140627
  Transmission Date: 20141212
  Serious: No
  Sender: FDA-Public Use
  Company Number: US-ASTRAZENECA-2014SE45151

PATIENT
  Age: 74 Year
  Sex: Female
  Weight: 70.8 kg

DRUGS (3)
  1. CRESTOR [Suspect]
     Indication: BLOOD CHOLESTEROL INCREASED
     Route: 048
     Dates: end: 2013
  2. CRESTOR [Suspect]
     Indication: BLOOD CHOLESTEROL INCREASED
     Route: 048
     Dates: start: 20140605
  3. LEVOTHYROXINE [Concomitant]
     Indication: THYROID DISORDER
     Route: 048
     Dates: start: 1970

REACTIONS (7)
  - Feeling abnormal [Recovered/Resolved]
  - Decreased activity [Recovered/Resolved]
  - Coeliac disease [Recovered/Resolved]
  - Therapy cessation [Unknown]
  - Intentional product misuse [Unknown]
  - Musculoskeletal discomfort [Not Recovered/Not Resolved]
  - Blood cholesterol increased [Not Recovered/Not Resolved]
